FAERS Safety Report 8757994 (Version 1)
Quarter: 2012Q4

REPORT INFORMATION
  Report Type: 
  Country: BR (occurrence: BR)
  Receive Date: 20120828
  Receipt Date: 20120828
  Transmission Date: 20130627
  Serious: Yes (Other)
  Sender: FDA-Public Use
  Company Number: BR-AMGEN-BRASP2012052094

PATIENT
  Age: 28 Year
  Sex: Female
  Weight: 49.98 kg

DRUGS (2)
  1. ENBREL [Suspect]
     Indication: ANKYLOSING SPONDYLITIS
     Dosage: 50 mg, once weekly
     Route: 058
     Dates: start: 201206
  2. NIMESULIDE [Concomitant]
     Indication: OROPHARYNGEAL PAIN
     Dosage: UNK

REACTIONS (11)
  - Oropharyngeal pain [Not Recovered/Not Resolved]
  - Chest discomfort [Not Recovered/Not Resolved]
  - Cough [Not Recovered/Not Resolved]
  - Haematochezia [Unknown]
  - Pus in stool [Unknown]
  - Hypotension [Unknown]
  - Abdominal pain [Unknown]
  - Asthenia [Unknown]
  - Diarrhoea [Unknown]
  - Rhinitis [Not Recovered/Not Resolved]
  - Influenza [Not Recovered/Not Resolved]
